FAERS Safety Report 13329643 (Version 2)
Quarter: 2017Q1

REPORT INFORMATION
  Report Type: Spontaneous
  Country: TR (occurrence: TR)
  Receive Date: 20170313
  Receipt Date: 20170322
  Transmission Date: 20170428
  Serious: Yes (Hospitalization, Other)
  Sender: FDA-Public Use
  Company Number: TR-SA-2017SA040026

PATIENT
  Age: 80 Year
  Sex: Male

DRUGS (5)
  1. ACETYLSALICYLIC ACID [Suspect]
     Active Substance: ASPIRIN
     Indication: CHRONIC KIDNEY DISEASE
     Route: 065
  2. CLOPIDOGREL BISULFATE. [Suspect]
     Active Substance: CLOPIDOGREL BISULFATE
     Indication: CORONARY ARTERY DISEASE
     Route: 048
  3. ENOXAPARIN SODIUM. [Suspect]
     Active Substance: ENOXAPARIN SODIUM
     Indication: PULMONARY EMBOLISM
     Dosage: DOSE_0.6 CC
     Route: 065
  4. CLOPIDOGREL BISULFATE. [Suspect]
     Active Substance: CLOPIDOGREL BISULFATE
     Indication: CHRONIC KIDNEY DISEASE
     Route: 048
  5. ACETYLSALICYLIC ACID [Suspect]
     Active Substance: ASPIRIN
     Indication: CORONARY ARTERY DISEASE
     Route: 065

REACTIONS (8)
  - Orthopnoea [Recovering/Resolving]
  - Atelectasis [Recovering/Resolving]
  - Thrombosis [Recovered/Resolved]
  - Tachypnoea [Recovering/Resolving]
  - Mucosal haemorrhage [Unknown]
  - Tracheal obstruction [Recovered/Resolved]
  - Dyspnoea [Recovering/Resolving]
  - Respiratory alkalosis [Recovering/Resolving]
